FAERS Safety Report 21409856 (Version 2)
Quarter: 2022Q4

REPORT INFORMATION
  Report Type: Report from Study
  Country: US (occurrence: US)
  Receive Date: 20221005
  Receipt Date: 20221118
  Transmission Date: 20230113
  Serious: No
  Sender: FDA-Public Use
  Company Number: US-ABBVIE-4135670

PATIENT
  Age: 38 Year
  Sex: Male

DRUGS (5)
  1. SKYRIZI [Suspect]
     Active Substance: RISANKIZUMAB-RZAA
     Indication: Psoriasis
     Route: 058
     Dates: start: 20220824, end: 2022
  2. SKYRIZI [Suspect]
     Active Substance: RISANKIZUMAB-RZAA
     Indication: Psoriatic arthropathy
     Route: 058
     Dates: start: 20220924
  3. AstraZeneca [Concomitant]
     Indication: COVID-19 immunisation
     Dosage: 1ST DOSE, 1 IN 1 DAY
     Route: 030
  4. AstraZeneca [Concomitant]
     Indication: COVID-19 immunisation
     Dosage: 2ND DOSE, 1 IN 1 DAY
     Route: 030
  5. Pfizer/BioNTech [Concomitant]
     Indication: COVID-19 immunisation
     Dosage: COVID BOOSTER VACCINE, 1 IN 1 DAY
     Route: 030

REACTIONS (2)
  - Fatigue [Not Recovered/Not Resolved]
  - Loss of personal independence in daily activities [Unknown]

NARRATIVE: CASE EVENT DATE: 20220924
